FAERS Safety Report 14262625 (Version 2)
Quarter: 2017Q4

REPORT INFORMATION
  Report Type: Spontaneous
  Country: US (occurrence: US)
  Receive Date: 20171208
  Receipt Date: 20171211
  Transmission Date: 20180321
  Serious: No
  Sender: FDA-Public Use
  Company Number: US-PFIZER INC-2017526628

PATIENT
  Age: 93 Year
  Sex: Female

DRUGS (7)
  1. ASPIRIN. [Concomitant]
     Active Substance: ASPIRIN
     Dosage: ONCE A DAY
     Dates: start: 2010
  2. DETROL [Concomitant]
     Active Substance: TOLTERODINE TARTRATE
     Indication: DYSURIA
     Dosage: 4 MG, CAPSULE, ONCE A DAY
  3. METFORMIN [Concomitant]
     Active Substance: METFORMIN HYDROCHLORIDE
     Indication: DIABETES MELLITUS
     Dosage: 750 MG/ TAKE IT ONCE BEFORE MEALS
     Dates: start: 2015
  4. ATROPINE SULFATE/DIPHENOXYLATE HYDROCHLORIDE [Suspect]
     Active Substance: ATROPINE SULFATE\DIPHENOXYLATE HYDROCHLORIDE
     Indication: DIARRHOEA
     Dosage: 2.5 MG, UNK
     Route: 048
     Dates: start: 201711
  5. SYNTHROID [Concomitant]
     Active Substance: LEVOTHYROXINE SODIUM
     Dosage: 100 MG
  6. DILTIAZEM. [Concomitant]
     Active Substance: DILTIAZEM
  7. DIGOXIN. [Concomitant]
     Active Substance: DIGOXIN

REACTIONS (5)
  - Dizziness [Recovered/Resolved]
  - Fatigue [Recovered/Resolved]
  - Product use issue [None]
  - Weight decreased [Unknown]
  - Wrong drug administered [None]
